FAERS Safety Report 20314920 (Version 2)
Quarter: 2022Q2

REPORT INFORMATION
  Report Type: Spontaneous
  Country: IT (occurrence: IT)
  Receive Date: 20220110
  Receipt Date: 20220415
  Transmission Date: 20220720
  Serious: Yes (Hospitalization)
  Sender: FDA-Public Use
  Company Number: None

PATIENT
  Age: 29 Year
  Sex: Male
  Weight: 72 kg

DRUGS (2)
  1. XANAX [Suspect]
     Active Substance: ALPRAZOLAM
     Indication: Syringomyelia
     Dosage: 15 DROP, AS NEEDED
     Route: 048
     Dates: start: 20211202, end: 20211209
  2. RIVOTRIL [Suspect]
     Active Substance: CLONAZEPAM
     Indication: Anxiety
     Dosage: UNK
     Route: 048

REACTIONS (6)
  - Withdrawal syndrome [Recovering/Resolving]
  - Anxiety [Recovering/Resolving]
  - Myalgia [Recovering/Resolving]
  - Paranoia [Recovering/Resolving]
  - Hallucination [Recovering/Resolving]
  - Off label use [Unknown]

NARRATIVE: CASE EVENT DATE: 20211202
